FAERS Safety Report 24458922 (Version 1)
Quarter: 2024Q4

REPORT INFORMATION
  Report Type: Report from Study
  Country: US (occurrence: US)
  Receive Date: 20241018
  Receipt Date: 20241018
  Transmission Date: 20250114
  Serious: No
  Sender: ROCHE
  Company Number: US-ROCHE-3526731

PATIENT
  Age: 52 Year
  Sex: Female

DRUGS (3)
  1. RITUXAN [Suspect]
     Active Substance: RITUXIMAB
     Indication: Overlap syndrome
     Dosage: ON WEEK(S) 0 AND WEEK(S) 2 EVERY 6 MONTH(S), EVERY 6 MONTHS, VIAL, DATE OF SERVICE: 16/FEB/2024, DAT
     Route: 041
     Dates: start: 20240216
  2. RITUXAN [Suspect]
     Active Substance: RITUXIMAB
     Indication: Rheumatoid arthritis
  3. RITUXAN [Suspect]
     Active Substance: RITUXIMAB
     Indication: Systemic lupus erythematosus

REACTIONS (2)
  - Off label use [Unknown]
  - No adverse event [Unknown]
